FAERS Safety Report 10311156 (Version 1)
Quarter: 2014Q3

REPORT INFORMATION
  Report Type: Spontaneous
  Country: US (occurrence: US)
  Receive Date: 20140717
  Receipt Date: 20140717
  Transmission Date: 20150326
  Serious: Yes (Hospitalization, Other)
  Sender: FDA-Public Use
  Company Number: US-US-EMD SERONO, INC.-7306145

PATIENT
  Sex: Female

DRUGS (1)
  1. REBIF [Suspect]
     Active Substance: INTERFERON BETA-1A
     Indication: MULTIPLE SCLEROSIS

REACTIONS (6)
  - Pneumonia [Unknown]
  - Escherichia infection [Unknown]
  - Neoplasm malignant [Unknown]
  - Skin ulcer [Unknown]
  - Multiple sclerosis [Recovering/Resolving]
  - Tendon rupture [Not Recovered/Not Resolved]
